FAERS Safety Report 9140241 (Version 2)
Quarter: 2013Q2

REPORT INFORMATION
  Report Type: Spontaneous
  Country: US (occurrence: US)
  Receive Date: 20130305
  Receipt Date: 20130527
  Transmission Date: 20140414
  Serious: Yes (Other)
  Sender: FDA-Public Use
  Company Number: US-009507513-1303USA000775

PATIENT
  Age: 79 Year
  Sex: Male

DRUGS (1)
  1. ZETIA [Suspect]
     Indication: BLOOD TRIGLYCERIDES
     Dosage: 10 MG, QD
     Route: 048
     Dates: end: 20130522

REACTIONS (3)
  - Cardiac operation [Unknown]
  - Urticaria [Unknown]
  - Lip swelling [Unknown]
